FAERS Safety Report 6215417-2 (Version None)
Quarter: 2009Q2

REPORT INFORMATION
  Report Type: 
  Country: None (occurrence: None)
  Receive Date: 20090603
  Receipt Date: 20090519
  Transmission Date: 20091009
  Serious: Yes (Hospitalization)
  Sender: FDA-Public Use
  Company Number: 2008AL004839

PATIENT
  Age: 43 Year
  Sex: Male
  Weight: 86.637 kg

DRUGS (16)
  1. DIGOXIN [Suspect]
     Dosage: 0.25MG, DAILY; PO
     Route: 048
  2. ASPIRIN [Concomitant]
  3. TRAMADOL HCL [Concomitant]
  4. CYCLOBENZAPRINE [Concomitant]
  5. PROPOXYPHEN [Concomitant]
  6. FLUOXETINE HCL [Concomitant]
  7. METOPROLOL SUCCINATE [Concomitant]
  8. PREDNISONE [Concomitant]
  9. VYTORIN [Concomitant]
  10. MECLIZINE [Concomitant]
  11. PLAVIX [Concomitant]
  12. LASIX [Concomitant]
  13. ADVAIR HFA [Concomitant]
  14. PREVACID [Concomitant]
  15. TOPROL-XL [Concomitant]
  16. LIPITOR [Concomitant]

REACTIONS (6)
  - CARDIAC STRESS TEST ABNORMAL [None]
  - CHEST DISCOMFORT [None]
  - CORONARY ARTERY DISEASE [None]
  - DYSPNOEA [None]
  - INJURY [None]
  - RENAL DISORDER [None]
